FAERS Safety Report 8218272-4 (Version None)
Quarter: 2012Q1

REPORT INFORMATION
  Report Type: 
  Country: None (occurrence: None)
  Receive Date: 20120319
  Receipt Date: 20120313
  Transmission Date: 20120608
  Serious: Yes (Other)
  Sender: FDA-Public Use
  Company Number: AU-ABBOTT-11P-008-0862730-00

PATIENT
  Sex: Female
  Weight: 145 kg

DRUGS (6)
  1. LOPERAMIDE [Concomitant]
     Indication: PRODUCT USED FOR UNKNOWN INDICATION
  2. HUMIRA [Suspect]
  3. PREDNISOLONE [Concomitant]
     Indication: PRODUCT USED FOR UNKNOWN INDICATION
  4. HUMIRA [Suspect]
     Dosage: 80MG INDUCTION
  5. DOTHEP [Concomitant]
     Indication: PRODUCT USED FOR UNKNOWN INDICATION
  6. HUMIRA [Suspect]
     Indication: CROHN'S DISEASE
     Dosage: INDUCTION 160MGWEEKLY
     Dates: start: 20110414

REACTIONS (5)
  - MULTIPLE SCLEROSIS [None]
  - DIZZINESS [None]
  - DEMYELINATION [None]
  - HEADACHE [None]
  - LOSS OF CONSCIOUSNESS [None]
